FAERS Safety Report 9378701 (Version 1)
Quarter: 2013Q2

REPORT INFORMATION
  Report Type: Spontaneous
  Country: IT (occurrence: None)
  Receive Date: 20130626
  Receipt Date: 20130626
  Transmission Date: 20140414
  Serious: Yes (Death)
  Sender: FDA-Public Use
  Company Number: AG-2013-014405

PATIENT
  Age: 19 Year
  Sex: Male

DRUGS (2)
  1. BUSULFAN [Suspect]
     Dosage: 1 MG/KG EVERY 6 H X 4 DAYS (1 MG/KG, UNKNOWN), UNKNOWN
  2. MELPHALAN [Suspect]

REACTIONS (1)
  - Multi-organ failure [None]
